FAERS Safety Report 18254448 (Version 1)
Quarter: 2020Q3

REPORT INFORMATION
  Report Type: Spontaneous
  Country: IT (occurrence: IT)
  Receive Date: 20200910
  Receipt Date: 20200910
  Transmission Date: 20201103
  Serious: Yes (Hospitalization)
  Sender: FDA-Public Use
  Company Number: IT-ASTRAZENECA-2020SF13384

PATIENT
  Age: 29 Year
  Sex: Female

DRUGS (5)
  1. QUETIAPINE. [Suspect]
     Active Substance: QUETIAPINE
     Indication: DRUG ABUSE
     Dosage: 200.0MG UNKNOWN
     Route: 048
     Dates: start: 20180220, end: 20180220
  2. LORAZEPAM LEDERLE [Suspect]
     Active Substance: LORAZEPAM
     Indication: DRUG ABUSE
     Dosage: 4.0DF UNKNOWN
     Route: 048
     Dates: start: 20180220, end: 20180220
  3. CARBOLITHIUM [Concomitant]
     Active Substance: LITHIUM CARBONATE
     Indication: NARCISSISTIC PERSONALITY DISORDER
     Dosage: 1.0DF UNKNOWN
     Route: 048
  4. TRILAFON [Suspect]
     Active Substance: PERPHENAZINE
     Indication: DRUG ABUSE
     Dosage: 15.0DF UNKNOWN
     Route: 048
     Dates: start: 20180220, end: 20180220
  5. FELISON [Suspect]
     Active Substance: FLURAZEPAM MONOHYDROCHLORIDE
     Indication: DRUG ABUSE
     Dosage: 3.0DF UNKNOWN
     Route: 048
     Dates: start: 20180220, end: 20180220

REACTIONS (3)
  - Drug abuse [Recovering/Resolving]
  - Sopor [Recovering/Resolving]
  - Bradykinesia [Recovering/Resolving]

NARRATIVE: CASE EVENT DATE: 20180220
